FAERS Safety Report 25526486 (Version 11)
Quarter: 2025Q4

REPORT INFORMATION
  Report Type: Spontaneous
  Country: US (occurrence: US)
  Receive Date: 20250707
  Receipt Date: 20251029
  Transmission Date: 20260117
  Serious: No
  Sender: PFIZER
  Company Number: US-PFIZER INC-202500129281

PATIENT
  Age: 13 Year
  Sex: Male

DRUGS (4)
  1. GENOTROPIN [Suspect]
     Active Substance: SOMATROPIN
     Indication: Growth hormone deficiency
     Dosage: EVERY NIGHT TAKES 1.4MG INJECTED BUTT OR THIGHS
     Dates: start: 2024
  2. GENOTROPIN [Suspect]
     Active Substance: SOMATROPIN
     Dosage: 1 MG, DAILY (7 DAYS/WEEK)
  3. DEXAMETHASONE\OFLOXACIN [Concomitant]
     Active Substance: DEXAMETHASONE\OFLOXACIN
     Indication: Attention deficit hyperactivity disorder
     Dosage: 5 MG, 1X/DAY (EVERY DAY IN THE MORNING)
     Dates: start: 2022
  4. GUANFACINE [Concomitant]
     Active Substance: GUANFACINE
     Dosage: 2 MG, 1X/DAY (AT NIGHT)
     Dates: start: 2023

REACTIONS (8)
  - Headache [Recovering/Resolving]
  - Device physical property issue [Unknown]
  - Device delivery system issue [Unknown]
  - Device breakage [Unknown]
  - Device mechanical issue [Unknown]
  - Incorrect dose administered by device [Unknown]
  - Poor quality device used [Unknown]
  - Drug dose omission by device [Unknown]

NARRATIVE: CASE EVENT DATE: 20250623
